FAERS Safety Report 5843434-0 (Version None)
Quarter: 2008Q3

REPORT INFORMATION
  Report Type: 
  Country: None (occurrence: None)
  Receive Date: 20080813
  Receipt Date: 20080808
  Transmission Date: 20090109
  Serious: Yes (Other)
  Sender: FDA-Public Use
  Company Number: IN-WATSON-2008-04790

PATIENT
  Age: 9 Year
  Sex: Male

DRUGS (5)
  1. PREDNISONE TAB [Suspect]
     Indication: CHEMOTHERAPY MULTIPLE AGENTS SYSTEMIC
     Dosage: 40 MG/M2 X 4 WEEKS
     Route: 048
  2. DAUNOMYCIN                         /00128201/ [Suspect]
     Indication: CHEMOTHERAPY MULTIPLE AGENTS SYSTEMIC
     Dosage: 30 MG/M2, DAYS 8, 15, 29
     Route: 042
  3. VINCRISTINE [Suspect]
     Indication: CHEMOTHERAPY MULTIPLE AGENTS SYSTEMIC
     Dosage: 1.4 MG/M2, DAYS 1, 8, 15, 22
     Route: 042
     Dates: start: 20080101
  4. ELSPAR [Suspect]
     Indication: CHEMOTHERAPY MULTIPLE AGENTS SYSTEMIC
     Dosage: 6000 IU/M2 ON ALTERNATE DAYS FOR 10 DOSES
     Route: 030
  5. METHOTREXATE [Suspect]
     Indication: CHEMOTHERAPY MULTIPLE AGENTS SYSTEMIC
     Dosage: 12 MG, 1/WEEK, 4 DOSES
     Route: 037

REACTIONS (1)
  - REVERSIBLE POSTERIOR LEUKOENCEPHALOPATHY SYNDROME [None]
